FAERS Safety Report 15694637 (Version 1)
Quarter: 2018Q4

REPORT INFORMATION
  Report Type: Spontaneous
  Country: AU (occurrence: AU)
  Receive Date: 20181206
  Receipt Date: 20181206
  Transmission Date: 20190205
  Serious: Yes (Other)
  Sender: FDA-Public Use
  Company Number: AU-TEVA-2018-AU-985467

PATIENT
  Sex: Male

DRUGS (2)
  1. QUETIAPINE. [Suspect]
     Active Substance: QUETIAPINE
     Dosage: DOSAGE UNKNOWN
     Route: 065
  2. CLOPINE [Suspect]
     Active Substance: CLOZAPINE
     Route: 065

REACTIONS (1)
  - Cardiac disorder [Unknown]
